FAERS Safety Report 13448027 (Version 4)
Quarter: 2017Q2

REPORT INFORMATION
  Report Type: Report from Study
  Country: US (occurrence: US)
  Receive Date: 20170417
  Receipt Date: 20170529
  Transmission Date: 20170830
  Serious: Yes (Other)
  Sender: FDA-Public Use
  Company Number: US-MALLINCKRODT-T201700460

PATIENT
  Age: 56 Year
  Sex: Female

DRUGS (1)
  1. REPOSITORY CORTICOTROPIN INJECTION [Suspect]
     Active Substance: CORTICOTROPIN
     Indication: SYSTEMIC LUPUS ERYTHEMATOSUS
     Dosage: 80 UNITS / 1 ML, 2 TIMES PER WEEK, MONDAYS AND THURSDAY
     Route: 058
     Dates: start: 20160707

REACTIONS (8)
  - Injection site haemorrhage [Not Recovered/Not Resolved]
  - Costochondritis [Not Recovered/Not Resolved]
  - Depressed mood [Recovering/Resolving]
  - Eye pain [Not Recovered/Not Resolved]
  - Influenza [Recovered/Resolved]
  - Glaucoma [Not Recovered/Not Resolved]
  - Eyelid infection [Not Recovered/Not Resolved]
  - Alopecia [Not Recovered/Not Resolved]

NARRATIVE: CASE EVENT DATE: 201702
